FAERS Safety Report 7318619-7 (Version None)
Quarter: 2011Q1

REPORT INFORMATION
  Report Type: 
  Country: None (occurrence: None)
  Receive Date: 20110228
  Receipt Date: 20110221
  Transmission Date: 20110831
  Serious: Yes (Death)
  Sender: FDA-Public Use
  Company Number: JP-ASTELLAS-2011JP001330

PATIENT
  Sex: Female
  Weight: 76 kg

DRUGS (8)
  1. LONGES [Concomitant]
     Route: 048
  2. YODEL [Concomitant]
     Route: 048
  3. TACROLIMUS [Suspect]
     Indication: LUPUS NEPHRITIS
     Dosage: 2 MG, UNKNOWN/D
     Route: 048
     Dates: start: 20070619
  4. PREDNISOLONE [Concomitant]
     Dosage: 15 MG, UNKNOWN/D
     Route: 048
     Dates: start: 20080609
  5. TAKEPRON [Concomitant]
     Route: 048
  6. PREDNISOLONE [Concomitant]
     Indication: LUPUS NEPHRITIS
     Dosage: 20 MG, UNKNOWN/D
     Route: 048
     Dates: end: 20071203
  7. PREDNISOLONE [Concomitant]
     Dosage: 17.5 MG, UNKNOWN/D
     Route: 048
     Dates: start: 20071204, end: 20080608
  8. ALFAROL [Concomitant]
     Dosage: 1 UG, UNKNOWN/D
     Route: 048

REACTIONS (1)
  - DEATH [None]
